FAERS Safety Report 5765319-0 (Version None)
Quarter: 2008Q2

REPORT INFORMATION
  Report Type: 
  Country: None (occurrence: None)
  Receive Date: 20080609
  Receipt Date: 20080609
  Transmission Date: 20081010
  Serious: Yes (Life-Threatening)
  Sender: FDA-Public Use
  Company Number: None

PATIENT
  Age: 57 Year
  Sex: Female
  Weight: 54.4316 kg

DRUGS (1)
  1. PROAIR HFA [Suspect]
     Indication: ASTHMA
     Dosage: 2 PUFFS  PO  (DURATION: USED ONLY ONCE)
     Route: 048
     Dates: start: 20080605, end: 20080605

REACTIONS (9)
  - ABDOMINAL PAIN UPPER [None]
  - ASTHMA [None]
  - BURNING SENSATION [None]
  - COUGH [None]
  - DRUG INEFFECTIVE [None]
  - NAUSEA [None]
  - PALPITATIONS [None]
  - PHARMACEUTICAL PRODUCT COMPLAINT [None]
  - RETCHING [None]
